FAERS Safety Report 16949514 (Version 4)
Quarter: 2020Q1

REPORT INFORMATION
  Report Type: Report from Study
  Country: None (occurrence: US)
  Receive Date: 20191023
  Receipt Date: 20200330
  Transmission Date: 20200409
  Serious: Yes (Other)
  Sender: FDA-Public Use
  Company Number: US-ABBVIE-19K-163-2971005-00

PATIENT
  Sex: Female
  Weight: 53.12 kg

DRUGS (9)
  1. HUMIRA [Suspect]
     Active Substance: ADALIMUMAB
     Dosage: LOT NUMBER FOR JULY AND AUGUST 2019
     Route: 058
  2. HUMIRA [Suspect]
     Active Substance: ADALIMUMAB
     Indication: RHEUMATOID ARTHRITIS
     Route: 058
  3. HUMIRA [Suspect]
     Active Substance: ADALIMUMAB
     Dosage: LOT NUMBER FOR MARCH 2019
     Route: 058
  4. HUMIRA [Suspect]
     Active Substance: ADALIMUMAB
     Dosage: LOT NUMBER FOR MARCH 2019
     Route: 058
  5. HUMIRA [Suspect]
     Active Substance: ADALIMUMAB
     Dosage: LOT NUMBER FOR APRIL 2019
     Route: 058
  6. HUMIRA [Suspect]
     Active Substance: ADALIMUMAB
     Dosage: LOT NUMBER FOR APRIL 2019
     Route: 058
  7. HUMIRA [Suspect]
     Active Substance: ADALIMUMAB
     Dosage: LOT NUMBER FOR MAY 2019
     Route: 058
  8. HUMIRA [Suspect]
     Active Substance: ADALIMUMAB
     Dosage: LOT NUMBER FOR JUNE 2019
     Route: 058
  9. HUMIRA [Suspect]
     Active Substance: ADALIMUMAB
     Dosage: LOT NUMBER FOR JULY 2019
     Route: 058

REACTIONS (3)
  - Brain neoplasm [Not Recovered/Not Resolved]
  - Neck pain [Unknown]
  - Platelet count decreased [Not Recovered/Not Resolved]
